FAERS Safety Report 15654290 (Version 1)
Quarter: 2018Q4

REPORT INFORMATION
  Report Type: Spontaneous
  Country: US (occurrence: US)
  Receive Date: 20181125
  Receipt Date: 20181125
  Transmission Date: 20190205
  Serious: Yes (Hospitalization, Other)
  Sender: FDA-Public Use
  Company Number: US-JNJFOC-20181117619

PATIENT
  Age: 17 Year
  Sex: Female

DRUGS (1)
  1. ACETAMINOPHEN 500 MG [Suspect]
     Active Substance: ACETAMINOPHEN
     Indication: DYSMENORRHOEA
     Dosage: 25 ACETAMINOPHEN 500 MG; IN TOTAL
     Route: 065

REACTIONS (3)
  - Overdose [Unknown]
  - Drug-induced liver injury [Unknown]
  - Haemolytic anaemia [Unknown]
